FAERS Safety Report 8581680-6 (Version None)
Quarter: 2012Q3

REPORT INFORMATION
  Report Type: 
  Country: None (occurrence: None)
  Receive Date: 20120727
  Receipt Date: 20120112
  Transmission Date: 20120928
  Serious: Yes (Hospitalization)
  Sender: FDA-Public Use
  Company Number: 2008001183

PATIENT
  Age: 71 Year
  Sex: Male

DRUGS (2)
  1. MEGACE (MEGESTEROL ACETATE) [Concomitant]
  2. TARCEVA [Suspect]
     Indication: LUNG CANCER METASTATIC
     Dosage: ORAL
     Route: 048

REACTIONS (2)
  - VENTRICULAR FIBRILLATION [None]
  - CARDIAC DISORDER [None]
